FAERS Safety Report 24708302 (Version 1)
Quarter: 2024Q4

REPORT INFORMATION
  Report Type: Spontaneous
  Country: US (occurrence: US)
  Receive Date: 20241207
  Receipt Date: 20241207
  Transmission Date: 20250115
  Serious: Yes (Other)
  Sender: ABBVIE
  Company Number: US-ABBVIE-6030529

PATIENT
  Sex: Female

DRUGS (1)
  1. RESTASIS [Suspect]
     Active Substance: CYCLOSPORINE
     Indication: Dry eye
     Route: 047

REACTIONS (6)
  - Eye operation [Unknown]
  - Eye pain [Unknown]
  - Ocular discomfort [Unknown]
  - COVID-19 [Unknown]
  - Product quality issue [Unknown]
  - Product expiration date issue [Unknown]
